FAERS Safety Report 4479630-7 (Version None)
Quarter: 2004Q4

REPORT INFORMATION
  Report Type: 
  Country: None (occurrence: None)
  Receive Date: 20041020
  Receipt Date: 20010531
  Transmission Date: 20050328
  Serious: Yes (Hospitalization)
  Sender: FDA-Public Use
  Company Number: BR-MERCK-01067901

PATIENT
  Age: 17 Year
  Sex: Female
  Weight: 55 kg

DRUGS (5)
  1. VIOXX [Suspect]
     Indication: DYSMENORRHOEA
     Route: 048
     Dates: start: 20010522
  2. VIOXX [Suspect]
     Route: 065
  3. VIOXX [Suspect]
     Indication: BACK PAIN
     Route: 048
     Dates: start: 20010522
  4. VIOXX [Suspect]
     Route: 065
  5. BUTYLSCOPOLAMINE BROMIDE [Concomitant]
     Route: 065

REACTIONS (6)
  - ABDOMINAL PAIN [None]
  - AMNESIA [None]
  - DIZZINESS [None]
  - DRUG TOXICITY [None]
  - HEADACHE [None]
  - NAUSEA [None]
